FAERS Safety Report 6966403-6 (Version None)
Quarter: 2010Q3

REPORT INFORMATION
  Report Type: 
  Country: None (occurrence: None)
  Receive Date: 20100904
  Receipt Date: 20071122
  Transmission Date: 20110219
  Serious: Yes (Life-Threatening, Hospitalization)
  Sender: FDA-Public Use
  Company Number: PHHO2007FR17844

PATIENT
  Sex: Female
  Weight: 75 kg

DRUGS (18)
  1. STI571/CGP57148B T35717+TAB [Suspect]
     Indication: ACUTE LYMPHOCYTIC LEUKAEMIA
     Dosage: 400 MG, BID
     Route: 048
     Dates: start: 20070927
  2. STI571/CGP57148B T35717+TAB [Suspect]
     Dosage: 300 MG, BID
     Route: 048
  3. PIPERACILLIN AND TAZOBACTAM [Concomitant]
  4. HIPAZIN [Concomitant]
  5. PLITICAN [Concomitant]
  6. ZOFRAN [Concomitant]
  7. SOTALEX [Concomitant]
  8. BACTRIM [Concomitant]
  9. NALTREXONE [Concomitant]
     Indication: ACUTE LYMPHOCYTIC LEUKAEMIA
  10. CYTARABINE [Concomitant]
     Indication: ACUTE LYMPHOCYTIC LEUKAEMIA
  11. CYCLOPHOSPHAMIDE [Concomitant]
     Indication: ACUTE LYMPHOCYTIC LEUKAEMIA
  12. DEXAMETHASONE [Concomitant]
     Indication: ACUTE LYMPHOCYTIC LEUKAEMIA
  13. DEPO-MEDROL [Concomitant]
  14. LEVOFLOXACIN [Concomitant]
  15. VANCOMYCIN [Suspect]
  16. HEPARIN [Concomitant]
  17. CLAFORAN [Concomitant]
  18. TRIFLUCAN [Concomitant]

REACTIONS (16)
  - APLASIA [None]
  - CANDIDA SEPSIS [None]
  - CHOLESTASIS [None]
  - CONFUSIONAL STATE [None]
  - CYTOLYTIC HEPATITIS [None]
  - ENDOTRACHEAL INTUBATION [None]
  - ENTEROBACTER INFECTION [None]
  - MECHANICAL VENTILATION [None]
  - NEUROPATHY PERIPHERAL [None]
  - NEUTROPENIA [None]
  - PNEUMONIA KLEBSIELLA [None]
  - RENAL FAILURE [None]
  - RESPIRATORY FAILURE [None]
  - SEPSIS [None]
  - SINUS TACHYCARDIA [None]
  - STAPHYLOCOCCAL INFECTION [None]
